FAERS Safety Report 8410574 (Version 3)
Quarter: 2014Q1

REPORT INFORMATION
  Report Type: Spontaneous
  Country: US (occurrence: None)
  Receive Date: 20121031
  Receipt Date: 20130107
  Transmission Date: 20141002
  Serious: Yes (Other)
  Sender: FDA-Public Use
  Company Number: PHEH2011US010000

PATIENT
  Age: 54 Year
  Sex: Female

DRUGS (7)
  1. GILENYA [Suspect]
     Indication: MULTIPLE SCLEROSIS
     Dosage: 0.5 MG, QD, ORAL
     Route: 048
     Dates: start: 20111111
  2. SIMVASTATIN [Concomitant]
  3. RAMIPRIL [Concomitant]
  4. HYDROXYZINE [Concomitant]
  5. BACLOFEN [Concomitant]
  6. PROVIGIL [Concomitant]
  7. VITAMIN D (ERGOCALCIFEROL) [Concomitant]

REACTIONS (3)
  - Colour blindness acquired [None]
  - Depression [None]
  - Diarrhoea [None]
